FAERS Safety Report 8130338-6 (Version None)
Quarter: 2012Q1

REPORT INFORMATION
  Report Type: 
  Country: None (occurrence: None)
  Receive Date: 20120210
  Receipt Date: 20120207
  Transmission Date: 20120608
  Serious: Yes (Hospitalization)
  Sender: FDA-Public Use
  Company Number: PHHY2010JP82709

PATIENT
  Sex: Male
  Weight: 53 kg

DRUGS (2)
  1. DESFERAL [Concomitant]
     Indication: IRON OVERLOAD
     Dosage: 500 MG,
     Route: 030
     Dates: start: 20090422, end: 20090518
  2. EXJADE [Suspect]
     Indication: IRON OVERLOAD
     Dosage: 250 MG, DAILY
     Route: 048
     Dates: start: 20090605, end: 20090730

REACTIONS (3)
  - ERYTHEMA [None]
  - GRAFT VERSUS HOST DISEASE [None]
  - FOLLICULITIS [None]
